FAERS Safety Report 7006494-X (Version None)
Quarter: 2010Q3

REPORT INFORMATION
  Report Type: 
  Country: None (occurrence: None)
  Receive Date: 20100921
  Receipt Date: 20100921
  Transmission Date: 20110219
  Serious: Yes (Hospitalization)
  Sender: FDA-Public Use
  Company Number: None

PATIENT
  Age: 78 Year
  Sex: Female

DRUGS (2)
  1. DRONEDARONE HCL [Suspect]
  2. WARFARIN SODIUM [Concomitant]

REACTIONS (3)
  - FALL [None]
  - INTERNATIONAL NORMALISED RATIO INCREASED [None]
  - VASCULAR PSEUDOANEURYSM [None]
